FAERS Safety Report 16424282 (Version 21)
Quarter: 2021Q1

REPORT INFORMATION
  Report Type: Report from Study
  Country: CA (occurrence: CA)
  Receive Date: 20190613
  Receipt Date: 20210331
  Transmission Date: 20210419
  Serious: Yes (Other)
  Sender: FDA-Public Use
  Company Number: PHHY2016CA116021

PATIENT
  Age: 48 Year
  Sex: Female

DRUGS (6)
  1. SANDOSTATIN LAR DEPOT [Suspect]
     Active Substance: OCTREOTIDE ACETATE
     Dosage: 60 MG, QMO
     Route: 030
     Dates: start: 20160613
  2. SANDOSTATIN [Suspect]
     Active Substance: OCTREOTIDE ACETATE
  3. SANDOSTATIN [Suspect]
     Active Substance: OCTREOTIDE ACETATE
  4. SANDOSTATIN LAR DEPOT [Suspect]
     Active Substance: OCTREOTIDE ACETATE
     Dosage: 30 MG, QMO  (ONCE A MONTH)
     Route: 030
     Dates: start: 20170728
  5. SANDOSTATIN LAR DEPOT [Suspect]
     Active Substance: OCTREOTIDE ACETATE
     Indication: CARCINOID TUMOUR
     Dosage: 30 MG, QMO (EVERY 4 WEEKS)
     Route: 030
     Dates: start: 20160613
  6. SANDOSTATIN [Suspect]
     Active Substance: OCTREOTIDE ACETATE
     Indication: CARCINOID TUMOUR
     Dosage: UNK, TID
     Route: 058
     Dates: start: 20160416, end: 201604

REACTIONS (43)
  - Memory impairment [Unknown]
  - Neuroendocrine tumour [Unknown]
  - Dysuria [Recovered/Resolved]
  - Palpitations [Unknown]
  - Dyspnoea [Unknown]
  - Oropharyngeal pain [Unknown]
  - Chest wall mass [Recovered/Resolved]
  - Cough [Unknown]
  - Cystitis [Recovered/Resolved]
  - Back pain [Recovered/Resolved]
  - Dizziness [Unknown]
  - Feeling abnormal [Unknown]
  - Illness [Recovering/Resolving]
  - Diarrhoea [Unknown]
  - Headache [Unknown]
  - Nasopharyngitis [Unknown]
  - Neck pain [Unknown]
  - Ear infection viral [Unknown]
  - Confusional state [Unknown]
  - Swelling [Recovered/Resolved]
  - Stress [Unknown]
  - Pyrexia [Unknown]
  - Throat tightness [Unknown]
  - Chest discomfort [Unknown]
  - Cardiac flutter [Unknown]
  - Rectal haemorrhage [Unknown]
  - Aphonia [Unknown]
  - Influenza [Unknown]
  - Feeling hot [Unknown]
  - Nasal congestion [Unknown]
  - Uterine enlargement [Unknown]
  - Hypertension [Unknown]
  - Metastases to ovary [Unknown]
  - Blood pressure systolic increased [Unknown]
  - Pharyngitis streptococcal [Unknown]
  - Pyrexia [Recovered/Resolved]
  - Feeling cold [Unknown]
  - Vomiting [Unknown]
  - Ear pain [Recovered/Resolved]
  - Pain [Unknown]
  - Back pain [Unknown]
  - Arthralgia [Unknown]
  - Nausea [Unknown]

NARRATIVE: CASE EVENT DATE: 201604
